FAERS Safety Report 9850067 (Version 1)
Quarter: 2013Q4

REPORT INFORMATION
  Report Type: Spontaneous
  Country: US (occurrence: None)
  Receive Date: 20131226
  Receipt Date: 20131226
  Transmission Date: 20140711
  Serious: Yes (Hospitalization)
  Sender: FDA-Public Use
  Company Number: PHEH2012US015592

PATIENT
  Sex: Male

DRUGS (1)
  1. AFINITOR (RAD) UNKNOWN [Suspect]
     Indication: MALIGNANT NEOPLASM OF ISLETS OF LANGERHANS
     Route: 048
     Dates: start: 20120409

REACTIONS (2)
  - Thrombosis [None]
  - Swelling [None]
